FAERS Safety Report 8971349 (Version 1)
Quarter: 2012Q4

REPORT INFORMATION
  Report Type: 
  Country: GB (occurrence: GB)
  Receive Date: 20121218
  Receipt Date: 20121218
  Transmission Date: 20130627
  Serious: Yes (Other)
  Sender: FDA-Public Use
  Company Number: GB-ROCHE-1167535

PATIENT
  Sex: Male

DRUGS (1)
  1. ROACCUTANE [Suspect]
     Indication: ACNE
     Route: 065
     Dates: end: 201105

REACTIONS (12)
  - Depression [Unknown]
  - Suicidal behaviour [Unknown]
  - Suicidal ideation [Unknown]
  - Dry eye [Unknown]
  - Mucosal dryness [Unknown]
  - Dry skin [Unknown]
  - Epistaxis [Unknown]
  - Nail growth abnormal [Unknown]
  - Temperature intolerance [Unknown]
  - Photosensitivity reaction [Unknown]
  - Migraine [Unknown]
  - Paronychia [Unknown]
